FAERS Safety Report 9021200 (Version 1)
Quarter: 2013Q1

REPORT INFORMATION
  Report Type: Report from Study
  Country: US (occurrence: US)
  Receive Date: 20130119
  Receipt Date: 20130119
  Transmission Date: 20140127
  Serious: Yes (Other)
  Sender: FDA-Public Use
  Company Number: US-US-EMD SERONO, INC.-7187640

PATIENT
  Sex: Female

DRUGS (1)
  1. REBIF [Suspect]
     Indication: PRODUCT USED FOR UNKNOWN INDICATION
     Route: 058
     Dates: start: 20061107

REACTIONS (7)
  - Staphylococcal infection [Recovering/Resolving]
  - Oophorectomy [Unknown]
  - Blood cholesterol increased [Unknown]
  - Crying [Unknown]
  - Injection site scar [Not Recovered/Not Resolved]
  - White blood cell count decreased [Unknown]
  - Injection site induration [Unknown]
